FAERS Safety Report 16628747 (Version 1)
Quarter: 2019Q3

REPORT INFORMATION
  Report Type: Report from Study
  Country: IT (occurrence: IT)
  Receive Date: 20190725
  Receipt Date: 20190725
  Transmission Date: 20191004
  Serious: Yes (Hospitalization)
  Sender: FDA-Public Use
  Company Number: IT-DSJP-DSE-2019-128559

PATIENT

DRUGS (8)
  1. ZYLORIC [Concomitant]
     Active Substance: ALLOPURINOL
     Indication: PRODUCT USED FOR UNKNOWN INDICATION
     Dosage: 300 MG, QD
     Route: 048
  2. PLAUNAZIDE [Suspect]
     Active Substance: HYDROCHLOROTHIAZIDE\OLMESARTAN MEDOXOMIL
     Indication: PRODUCT USED FOR UNKNOWN INDICATION
     Dosage: 20MG/12.5 MG, QD
     Route: 048
     Dates: start: 20141013
  3. PRADAXA [Suspect]
     Active Substance: DABIGATRAN ETEXILATE MESYLATE
     Indication: ATRIAL FIBRILLATION
     Dosage: 110 MG, BID
     Route: 048
     Dates: start: 20140203
  4. ONCO CARBIDE [Concomitant]
     Active Substance: HYDROXYUREA
     Indication: MYELOFIBROSIS
     Dosage: 2 DF, UNK
     Route: 048
  5. LUVION                             /00252502/ [Suspect]
     Active Substance: CANRENOATE POTASSIUM
     Indication: PRODUCT USED FOR UNKNOWN INDICATION
     Dosage: 50 MG, BID
     Route: 048
     Dates: start: 20180130
  6. LASIX [Concomitant]
     Active Substance: FUROSEMIDE
     Indication: PRODUCT USED FOR UNKNOWN INDICATION
     Dosage: 25 MG, QD
     Route: 048
     Dates: start: 20170118
  7. BISOPROLOL TEVA [Concomitant]
     Active Substance: BISOPROLOL
     Indication: PRODUCT USED FOR UNKNOWN INDICATION
     Dosage: 1.25 MG, QD
     Route: 048
     Dates: start: 20180528
  8. LANOXIN [Concomitant]
     Active Substance: DIGOXIN
     Indication: PRODUCT USED FOR UNKNOWN INDICATION
     Dosage: 0.125 MG, QD
     Route: 048
     Dates: start: 20180312

REACTIONS (5)
  - Anaemia [Recovered/Resolved]
  - Metabolic acidosis [Recovered/Resolved]
  - Asthenia [Recovered/Resolved]
  - Faeces discoloured [Recovered/Resolved]
  - Hyperkalaemia [Recovered/Resolved]

NARRATIVE: CASE EVENT DATE: 20180523
